FAERS Safety Report 11244712 (Version 2)
Quarter: 2016Q1

REPORT INFORMATION
  Report Type: Spontaneous
  Country: JP (occurrence: JP)
  Receive Date: 20150707
  Receipt Date: 20160108
  Transmission Date: 20160525
  Serious: Yes (Other)
  Sender: FDA-Public Use
  Company Number: JP-CIPLA LTD.-2015JP05229

PATIENT

DRUGS (3)
  1. TOPIRAMATE. [Suspect]
     Active Substance: TOPIRAMATE
     Indication: SIMPLE PARTIAL SEIZURES
     Dosage: 100 MG, QD
     Route: 065
  2. CARBAMAZEPINE. [Concomitant]
     Active Substance: CARBAMAZEPINE
     Indication: SIMPLE PARTIAL SEIZURES
     Dosage: UNK
     Route: 065
  3. LEVETIRACETAM. [Concomitant]
     Active Substance: LEVETIRACETAM
     Indication: SIMPLE PARTIAL SEIZURES
     Dosage: UNK
     Route: 065

REACTIONS (1)
  - Adverse event [Unknown]
